FAERS Safety Report 22606997 (Version 1)
Quarter: 2023Q2

REPORT INFORMATION
  Report Type: Spontaneous
  Country: US (occurrence: None)
  Receive Date: 20230612
  Receipt Date: 20230612
  Transmission Date: 20230722
  Serious: No
  Sender: FDA-Public Use
  Company Number: None

PATIENT

DRUGS (2)
  1. .DELTA.9-TETRAHYDROCANNABINOL\CANNABIDIOL\HERBALS [Suspect]
     Active Substance: .DELTA.9-TETRAHYDROCANNABINOL\CANNABIDIOL\HERBALS
  2. MALATHION [Suspect]
     Active Substance: MALATHION

REACTIONS (2)
  - Product contamination chemical [None]
  - Poor quality product administered [None]

NARRATIVE: CASE EVENT DATE: 20230530
